FAERS Safety Report 7514752-5 (Version None)
Quarter: 2011Q2

REPORT INFORMATION
  Report Type: 
  Country: None (occurrence: None)
  Receive Date: 20110601
  Receipt Date: 20110519
  Transmission Date: 20111010
  Serious: Yes (Hospitalization, Other)
  Sender: FDA-Public Use
  Company Number: US-BAYER-201041133NA

PATIENT
  Sex: Female
  Weight: 95.238 kg

DRUGS (30)
  1. YASMIN [Suspect]
     Dosage: UNK
     Dates: start: 20050901, end: 20060301
  2. ALBUTEROL SULFATE AUTOHALER [Concomitant]
     Indication: ASTHMA
     Dosage: UNK
     Dates: start: 20020101
  3. SPRINTEC [Concomitant]
     Dosage: UNK
     Dates: start: 20110114
  4. CELEXA [Concomitant]
  5. ESTROSTEP FE [Concomitant]
     Dosage: UNK
     Dates: start: 20031013
  6. FEMCON FE [Concomitant]
     Indication: PRODUCT USED FOR UNKNOWN INDICATION
     Dosage: UNK
     Dates: start: 20050112
  7. SPRINTEC [Concomitant]
     Dosage: UNK
     Dates: start: 20100719
  8. SPRINTEC [Concomitant]
     Dosage: UNK
     Dates: start: 20100817
  9. KLONOPIN [Concomitant]
  10. WELLBUTRIN [Concomitant]
  11. NASONEX [Concomitant]
     Indication: ASTHMA
     Dosage: UNK
     Dates: start: 20020101
  12. YAZ [Suspect]
     Dosage: UNK
     Dates: start: 20050901, end: 20060301
  13. SINGULAIR [Concomitant]
     Indication: MULTIPLE ALLERGIES
  14. ORTHO TRI-CYCLEN LO [Concomitant]
     Dosage: UNK
     Dates: start: 20040419
  15. ALLEGRA [Concomitant]
  16. YAZ [Suspect]
     Indication: ACNE
     Dosage: UNK
     Dates: start: 20040101
  17. YASMIN [Suspect]
     Indication: ACNE
     Dosage: UNK
     Dates: start: 20040101
  18. NASONEX [Concomitant]
     Indication: MULTIPLE ALLERGIES
  19. YASMIN [Suspect]
     Dosage: UNK
     Dates: start: 20061001, end: 20091201
  20. FEXOFENADINE [Concomitant]
     Indication: MULTIPLE ALLERGIES
  21. EFFEXOR XR [Concomitant]
     Indication: PRODUCT USED FOR UNKNOWN INDICATION
     Dosage: UNK
     Dates: start: 20070101
  22. YAZ [Suspect]
     Dosage: UNK
     Dates: start: 20061001, end: 20091001
  23. SINGULAIR [Concomitant]
     Indication: ASTHMA
     Dosage: UNK
     Dates: start: 20020101
  24. FEXOFENADINE [Concomitant]
     Indication: ASTHMA
     Dosage: UNK
     Dates: start: 20020101
  25. AZITHROMYCIN [Concomitant]
     Indication: PRODUCT USED FOR UNKNOWN INDICATION
     Dosage: UNK
     Dates: start: 20080101
  26. ORTHO TRI-CYCLEN LO [Concomitant]
     Indication: PRODUCT USED FOR UNKNOWN INDICATION
     Dosage: UNK
     Dates: start: 20040315
  27. SPRINTEC [Concomitant]
     Indication: PRODUCT USED FOR UNKNOWN INDICATION
     Dosage: UNK
     Dates: start: 20100128
  28. ALBUTEROL SULFATE AUTOHALER [Concomitant]
     Indication: MULTIPLE ALLERGIES
  29. MOTRIN [Concomitant]
     Indication: PRODUCT USED FOR UNKNOWN INDICATION
  30. ESTROSTEP FE [Concomitant]
     Indication: PRODUCT USED FOR UNKNOWN INDICATION
     Dosage: UNK
     Dates: start: 20030926

REACTIONS (2)
  - GALLBLADDER DISORDER [None]
  - CHOLELITHIASIS [None]
